FAERS Safety Report 24686234 (Version 1)
Quarter: 2024Q4

REPORT INFORMATION
  Report Type: Report from Study
  Country: JP (occurrence: JP)
  Receive Date: 20241202
  Receipt Date: 20241202
  Transmission Date: 20250114
  Serious: Yes (Other)
  Sender: RECORDATI
  Company Number: JP-ORPHANEU-2024005724

PATIENT

DRUGS (9)
  1. PASIREOTIDE [Suspect]
     Active Substance: PASIREOTIDE
     Indication: Pituitary-dependent Cushing^s syndrome
     Dosage: 10 MILLIGRAM
     Dates: start: 20190205, end: 20190307
  2. PASIREOTIDE [Suspect]
     Active Substance: PASIREOTIDE
     Dosage: 20 MILLIGRAM
     Dates: start: 20190308, end: 20210706
  3. PASIREOTIDE [Suspect]
     Active Substance: PASIREOTIDE
     Dosage: 30 MILLIGRAM
     Dates: start: 20210707
  4. METYRAPONE [Concomitant]
     Active Substance: METYRAPONE
     Indication: Pituitary-dependent Cushing^s syndrome
     Dosage: 2000 MILLIGRAM
     Route: 048
  5. CORTRIL [Concomitant]
     Active Substance: HYDROCORTISONE
     Indication: Pituitary-dependent Cushing^s syndrome
     Dosage: 15 MILLIGRAM
     Route: 048
  6. TRESIBA [Concomitant]
     Active Substance: INSULIN DEGLUDEC
     Indication: Disease complication
     Dosage: 12 UNITS/INJECTION
     Dates: start: 20200218
  7. METGLUCO [Concomitant]
     Active Substance: METFORMIN HYDROCHLORIDE
     Indication: Disease complication
     Dosage: 1000 MILLIGRAM
     Route: 048
     Dates: start: 20200317
  8. JARDIANCE [Concomitant]
     Active Substance: EMPAGLIFLOZIN
     Indication: Disease complication
     Dosage: 10 MILLIGRAM
     Route: 048
     Dates: start: 20210114
  9. HUMALOG [Concomitant]
     Active Substance: INSULIN LISPRO
     Indication: Disease complication
     Dosage: 10 UNITS/INJECTION
     Dates: start: 20210719

REACTIONS (2)
  - Diabetes mellitus [Recovering/Resolving]
  - Therapeutic product effect variable [Recovered/Resolved]

NARRATIVE: CASE EVENT DATE: 20200218
